FAERS Safety Report 14569073 (Version 1)
Quarter: 2018Q1

REPORT INFORMATION
  Report Type: Spontaneous
  Country: DE (occurrence: DE)
  Receive Date: 20180223
  Receipt Date: 20180223
  Transmission Date: 20180509
  Serious: Yes (Congenital Anomaly)
  Sender: FDA-Public Use
  Company Number: DE-B.I. PHARMACEUTICALS,INC./RIDGEFIELD-2018-12-000578

PATIENT
  Age: 1 Day
  Sex: Male
  Weight: 2.15 kg

DRUGS (5)
  1. AMANTADIN [Suspect]
     Active Substance: AMANTADINE
     Indication: PARKINSON^S DISEASE
     Dosage: 200 [MG/D ]
     Route: 064
     Dates: start: 20160612, end: 20160811
  2. SIFROL [Suspect]
     Active Substance: PRAMIPEXOLE
     Indication: PARKINSON^S DISEASE
     Dosage: 1.05 [MG/D ]
     Route: 064
     Dates: start: 20160612, end: 20160811
  3. METOHEXAL [Concomitant]
     Active Substance: METOPROLOL SUCCINATE
     Indication: HYPERTENSION
     Dosage: 47.5 [MG/D ]
     Route: 064
  4. RASAGILINE. [Suspect]
     Active Substance: RASAGILINE
     Indication: PARKINSON^S DISEASE
     Dosage: 1 [MG/D ]
     Route: 064
     Dates: start: 20160612, end: 20160811
  5. LEVODOPA BENSERAZID BETA [Suspect]
     Active Substance: BENSERAZIDE HYDROCHLORIDE\LEVODOPA
     Indication: PARKINSON^S DISEASE
     Dosage: 150 [MG/D ] / 37.5 [MG/D ]
     Route: 064
     Dates: start: 20160812, end: 20170220

REACTIONS (2)
  - Foetal exposure during pregnancy [Unknown]
  - Atrial septal defect [Unknown]

NARRATIVE: CASE EVENT DATE: 20170220
